FAERS Safety Report 12916455 (Version 1)
Quarter: 2016Q4

REPORT INFORMATION
  Report Type: Report from Study
  Country: CH (occurrence: CH)
  Receive Date: 20161107
  Receipt Date: 20161107
  Transmission Date: 20170207
  Serious: Yes (Death, Other)
  Sender: FDA-Public Use
  Company Number: CH-ROCHE-577261

PATIENT

DRUGS (4)
  1. CAPECITABINE. [Suspect]
     Active Substance: CAPECITABINE
     Indication: COLORECTAL CANCER METASTATIC
     Dosage: 3 WEEK CYCLE: 2 WEEKS TREATMENT, 1 WEEK REST
     Route: 048
  2. CETUXIMAB [Suspect]
     Active Substance: CETUXIMAB
     Indication: COLORECTAL CANCER METASTATIC
     Dosage: INITIAL DOSE
     Route: 065
  3. OXALIPLATIN. [Suspect]
     Active Substance: OXALIPLATIN
     Indication: COLORECTAL CANCER METASTATIC
     Dosage: GIVEN ON DAY 1 AS A 2-HOURS INFUSION IN 250 ML OF DEXTROSE 5% REPEATED EVERY 3 WEEKS
     Route: 042
  4. CETUXIMAB [Suspect]
     Active Substance: CETUXIMAB
     Route: 042

REACTIONS (16)
  - Vomiting [Unknown]
  - Stomatitis [Unknown]
  - Cancer surgery [Unknown]
  - Mucosal inflammation [Unknown]
  - Death [Fatal]
  - Fatigue [Unknown]
  - Rash [Unknown]
  - Neuropathy peripheral [Unknown]
  - Nausea [Unknown]
  - Diarrhoea [Unknown]
  - Skin toxicity [Unknown]
  - Thrombocytopenia [Unknown]
  - Disease progression [Unknown]
  - Hypersensitivity [Unknown]
  - Decreased appetite [Unknown]
  - Palmar-plantar erythrodysaesthesia syndrome [Unknown]
